FAERS Safety Report 14144788 (Version 1)
Quarter: 2017Q4

REPORT INFORMATION
  Report Type: Spontaneous
  Country: DE (occurrence: DE)
  Receive Date: 20171031
  Receipt Date: 20171031
  Transmission Date: 20180321
  Serious: Yes (Other)
  Sender: FDA-Public Use
  Company Number: PHHY2017DE158012

PATIENT
  Sex: Female
  Weight: 93 kg

DRUGS (2)
  1. MAXIM (DIENOGEST\ETHINYL ESTRADIOL) [Suspect]
     Active Substance: DIENOGEST\ETHINYL ESTRADIOL
     Indication: CHEMICAL CONTRACEPTION
     Dosage: UNK
     Route: 065
     Dates: start: 201708, end: 20170824
  2. COSENTYX [Suspect]
     Active Substance: SECUKINUMAB
     Indication: PRODUCT USED FOR UNKNOWN INDICATION
     Dosage: 150 MG, UNK
     Route: 065
     Dates: start: 201702

REACTIONS (5)
  - Peripheral swelling [Unknown]
  - Hypercoagulation [Unknown]
  - Pain in extremity [Unknown]
  - Musculoskeletal stiffness [Unknown]
  - Deep vein thrombosis [Unknown]

NARRATIVE: CASE EVENT DATE: 201708
